FAERS Safety Report 15724015 (Version 1)
Quarter: 2018Q4

REPORT INFORMATION
  Report Type: Spontaneous
  Country: US (occurrence: US)
  Receive Date: 20181214
  Receipt Date: 20181214
  Transmission Date: 20190205
  Serious: Yes (Other)
  Sender: FDA-Public Use
  Company Number: US-SUNOVION-2018SUN004694

PATIENT
  Age: 55 Year
  Sex: Male
  Weight: 126.98 kg

DRUGS (8)
  1. LATUDA [Suspect]
     Active Substance: LURASIDONE HYDROCHLORIDE
     Dosage: 30 MG
     Route: 048
  2. LIPITOR [Concomitant]
     Active Substance: ATORVASTATIN CALCIUM
     Indication: BLOOD CHOLESTEROL INCREASED
     Dosage: UNK
  3. LATUDA [Suspect]
     Active Substance: LURASIDONE HYDROCHLORIDE
     Dosage: 60 MG
     Route: 048
     Dates: start: 20181126
  4. LATUDA [Suspect]
     Active Substance: LURASIDONE HYDROCHLORIDE
     Indication: BIPOLAR DISORDER
     Dosage: 20 MG
     Route: 048
  5. GLIPIZIDE. [Concomitant]
     Active Substance: GLIPIZIDE
     Indication: TYPE 2 DIABETES MELLITUS
     Dosage: UNK
  6. LATUDA [Suspect]
     Active Substance: LURASIDONE HYDROCHLORIDE
     Dosage: 20 MG
     Route: 048
     Dates: end: 20181125
  7. LATUDA [Suspect]
     Active Substance: LURASIDONE HYDROCHLORIDE
     Dosage: 40 MG
     Route: 048
  8. LANTUS [Concomitant]
     Active Substance: INSULIN GLARGINE
     Indication: TYPE 2 DIABETES MELLITUS
     Dosage: UNK

REACTIONS (6)
  - Weight increased [Not Recovered/Not Resolved]
  - Anxiety [Not Recovered/Not Resolved]
  - Restlessness [Not Recovered/Not Resolved]
  - Blood glucose increased [Not Recovered/Not Resolved]
  - Fatigue [Not Recovered/Not Resolved]
  - Insomnia [Not Recovered/Not Resolved]

NARRATIVE: CASE EVENT DATE: 20181126
